FAERS Safety Report 8866160 (Version 1)
Quarter: 2012Q4

REPORT INFORMATION
  Report Type: 
  Country: FR (occurrence: FR)
  Receive Date: 20121025
  Receipt Date: 20121025
  Transmission Date: 20130627
  Serious: Yes (Hospitalization)
  Sender: FDA-Public Use
  Company Number: FR-ROCHE-1147790

PATIENT
  Age: 69 Year
  Sex: Female

DRUGS (2)
  1. HERCEPTIN [Suspect]
     Indication: BREAST CANCER METASTATIC
     Route: 065
  2. TAXOTERE [Concomitant]
     Indication: BREAST CANCER METASTATIC

REACTIONS (2)
  - Cardiac failure congestive [Not Recovered/Not Resolved]
  - Mitral valve incompetence [Not Recovered/Not Resolved]
